FAERS Safety Report 24287797 (Version 4)
Quarter: 2025Q3

REPORT INFORMATION
  Report Type: Spontaneous
  Country: JP (occurrence: JP)
  Receive Date: 20240905
  Receipt Date: 20250709
  Transmission Date: 20251020
  Serious: Yes (Hospitalization, Other)
  Sender: EISAI
  Company Number: JP-Eisai-202406704_LEN-RCC_P_1

PATIENT
  Age: 71 Year
  Sex: Male

DRUGS (4)
  1. LENVATINIB [Suspect]
     Active Substance: LENVATINIB
     Indication: Renal cell carcinoma
     Dates: start: 20230405
  2. LENVATINIB [Suspect]
     Active Substance: LENVATINIB
     Dates: start: 2023
  3. LENVATINIB [Suspect]
     Active Substance: LENVATINIB
  4. KEYTRUDA [Suspect]
     Active Substance: PEMBROLIZUMAB
     Indication: Renal cell carcinoma
     Dates: start: 20230405

REACTIONS (8)
  - Immune-mediated adrenal insufficiency [Recovering/Resolving]
  - Interstitial lung disease [Unknown]
  - Palmar-plantar erythrodysaesthesia syndrome [Unknown]
  - Diarrhoea [Unknown]
  - Hypertension [Unknown]
  - Taste disorder [Unknown]
  - Weight decreased [Unknown]
  - Stomatitis [Unknown]

NARRATIVE: CASE EVENT DATE: 20230101
